FAERS Safety Report 18949820 (Version 1)
Quarter: 2021Q1

REPORT INFORMATION
  Report Type: Spontaneous
  Country: US (occurrence: US)
  Receive Date: 20210227
  Receipt Date: 20210227
  Transmission Date: 20210420
  Serious: No
  Sender: FDA-Public Use
  Company Number: US-ROCHE-2616615

PATIENT
  Age: 64 Year
  Sex: Female
  Weight: 81.27 kg

DRUGS (8)
  1. LEVOTHYROXINE. [Concomitant]
     Active Substance: LEVOTHYROXINE
     Indication: THYROID HORMONE REPLACEMENT THERAPY
     Dosage: YES
     Route: 048
  2. ACIPHEX [Concomitant]
     Active Substance: RABEPRAZOLE SODIUM
     Dosage: YES
     Route: 048
  3. ZYRTEC (UNITED STATES) [Concomitant]
     Dosage: YES
     Route: 048
  4. ATORVASTATIN [Concomitant]
     Active Substance: ATORVASTATIN
     Dosage: YES
     Route: 048
  5. XOLAIR [Suspect]
     Active Substance: OMALIZUMAB
     Indication: SWOLLEN TONGUE
     Dosage: YES
     Route: 058
     Dates: start: 201504
  6. AUVI?Q [Concomitant]
     Active Substance: EPINEPHRINE
     Dosage: YES
     Route: 058
  7. HYDROCHLOROTHIAZIDE. [Concomitant]
     Active Substance: HYDROCHLOROTHIAZIDE
     Dosage: YES
     Route: 048
  8. TRIAMCINOLONE [Concomitant]
     Active Substance: TRIAMCINOLONE
     Dosage: 0.1% STRENGTH, APPLY TO AFFECTED AREA ;ONGOING: NO
     Route: 061
     Dates: start: 201907, end: 201907

REACTIONS (3)
  - Arthropod bite [Recovered/Resolved]
  - Intentional product use issue [Unknown]
  - Off label use [Unknown]

NARRATIVE: CASE EVENT DATE: 201907
